FAERS Safety Report 8122657-4 (Version None)
Quarter: 2012Q1

REPORT INFORMATION
  Report Type: 
  Country: None (occurrence: None)
  Receive Date: 20120208
  Receipt Date: 20120131
  Transmission Date: 20120608
  Serious: Yes (Hospitalization)
  Sender: FDA-Public Use
  Company Number: US-BIOGENIDEC-2011BI046013

PATIENT
  Age: 28 Year
  Sex: Female
  Weight: 84 kg

DRUGS (11)
  1. NEURONTIN [Concomitant]
     Indication: NEUROPATHY PERIPHERAL
     Route: 048
  2. PROTONIX [Concomitant]
     Route: 048
  3. LEXAPRO [Concomitant]
     Indication: DEPRESSION
     Route: 048
  4. LIDODERM [Concomitant]
     Route: 061
  5. ACTIVASE [Concomitant]
     Route: 042
  6. MIRAPEX [Concomitant]
     Indication: RESTLESS LEGS SYNDROME
     Route: 048
  7. TRILEPTAL [Concomitant]
     Route: 048
  8. VICODIN [Concomitant]
     Route: 048
  9. TYSABRI [Suspect]
     Indication: MULTIPLE SCLEROSIS
     Route: 042
     Dates: start: 20080826
  10. FLEXERIL [Concomitant]
     Route: 048
  11. ROZEREM [Concomitant]
     Route: 048

REACTIONS (3)
  - HYPERSENSITIVITY [None]
  - URINARY TRACT INFECTION [None]
  - FUNGAEMIA [None]
